FAERS Safety Report 8464659-4 (Version None)
Quarter: 2012Q2

REPORT INFORMATION
  Report Type: 
  Country: None (occurrence: None)
  Receive Date: 20120620
  Receipt Date: 20120620
  Transmission Date: 20120825
  Serious: Yes (Life-Threatening, Hospitalization, Disabling, Other)
  Sender: FDA-Public Use
  Company Number: None

PATIENT
  Age: 57 Year
  Sex: Female
  Weight: 144.2439 kg

DRUGS (1)
  1. MACROBID [Suspect]
     Indication: URINARY TRACT INFECTION
     Dosage: 2 CAPSULE BY MOUTH PER DAY
     Route: 048
     Dates: start: 20120327, end: 20120403

REACTIONS (6)
  - OCULAR ICTERUS [None]
  - ASTHENIA [None]
  - MALAISE [None]
  - ACTIVITIES OF DAILY LIVING IMPAIRED [None]
  - YELLOW SKIN [None]
  - IMPAIRED WORK ABILITY [None]
